FAERS Safety Report 9634030 (Version 1)
Quarter: 2013Q4

REPORT INFORMATION
  Report Type: Spontaneous
  Country: US (occurrence: US)
  Receive Date: 20131021
  Receipt Date: 20131021
  Transmission Date: 20140711
  Serious: No
  Sender: FDA-Public Use
  Company Number: US-009507513-1309USA011787

PATIENT
  Sex: Female

DRUGS (2)
  1. PEGINTRON [Suspect]
     Dosage: REDIPEN, INJECTION OF 120 MCG PER 0.5 ML/ONCE WEEKLY
     Dates: start: 201308
  2. PEGINTRON [Suspect]
     Dosage: REDIPEN, INJECTION OF 120 MEG PER 0.5 ML/ONCE WEEKLY
     Dates: start: 2013

REACTIONS (3)
  - Kidney infection [Unknown]
  - Product quality issue [Unknown]
  - Drug dose omission [Unknown]
